FAERS Safety Report 6418375-0 (Version None)
Quarter: 2009Q4

REPORT INFORMATION
  Report Type: 
  Country: None (occurrence: None)
  Receive Date: 20091028
  Receipt Date: 20091019
  Transmission Date: 20100525
  Serious: Yes (Hospitalization)
  Sender: FDA-Public Use
  Company Number: ES-AMGEN-QUU369714

PATIENT
  Age: 76 Year
  Sex: Male

DRUGS (6)
  1. ARANESP [Suspect]
     Indication: RENAL FAILURE CHRONIC
     Route: 058
     Dates: start: 20061101
  2. ENALAPRIL [Concomitant]
     Route: 048
  3. OMEPRAZOLE [Concomitant]
     Route: 048
  4. EZETIMIBE [Concomitant]
     Route: 048
     Dates: start: 20070101
  5. CLOPIDOGREL [Concomitant]
     Route: 048
     Dates: start: 20070101
  6. ATORVASTATIN [Concomitant]
     Route: 048
     Dates: start: 20070101

REACTIONS (2)
  - EOSINOPHILIA [None]
  - PULMONARY MASS [None]
